FAERS Safety Report 8124193-8 (Version None)
Quarter: 2012Q1

REPORT INFORMATION
  Report Type: 
  Country: None (occurrence: None)
  Receive Date: 20120209
  Receipt Date: 20120126
  Transmission Date: 20120608
  Serious: Yes (Life-Threatening, Hospitalization)
  Sender: FDA-Public Use
  Company Number: DE-RANBAXY-2009RR-24499

PATIENT
  Age: 69 Year
  Sex: Female
  Weight: 60 kg

DRUGS (12)
  1. CALCIUM [Concomitant]
     Indication: OSTEOPOROSIS
     Dosage: 600 MG, QD
     Route: 048
     Dates: start: 20030101, end: 20090313
  2. CLOPIDOGREL BISULFATE [Concomitant]
     Indication: ISCHAEMIC HEART DISEASE PROPHYLAXIS
     Dosage: 75 MG, QD
     Route: 048
     Dates: start: 20090226, end: 20090315
  3. ZOLPIDEM [Interacting]
     Indication: SLEEP DISORDER
     Dosage: 10 MG, QD
     Route: 048
     Dates: start: 20060101, end: 20090313
  4. RAMIPRIL [Interacting]
     Indication: HYPERTENSION
     Dosage: UNK
     Route: 048
     Dates: start: 20000101, end: 20090315
  5. NEBIVOLOL SANDOZ [Concomitant]
     Indication: HYPERTENSION
     Dosage: 2.5 MG, BID
     Route: 048
     Dates: start: 20000101
  6. DIPIPERON [Concomitant]
     Indication: PRODUCT USED FOR UNKNOWN INDICATION
     Dosage: UNK
     Route: 065
     Dates: start: 20090301, end: 20090316
  7. DIAZEPAM [Concomitant]
     Indication: PRODUCT USED FOR UNKNOWN INDICATION
     Dosage: UNK
     Route: 065
     Dates: start: 20090316
  8. HALOPERIDOL [Suspect]
     Indication: RESTLESSNESS
     Dosage: 1 MG, BID
     Route: 048
     Dates: start: 20070101, end: 20090313
  9. THEOPHYLLINE [Interacting]
     Indication: CHRONIC OBSTRUCTIVE PULMONARY DISEASE
     Dosage: 250 MG, BID
     Route: 048
     Dates: start: 20050101
  10. PANTOPRAZOLE [Interacting]
     Indication: PROPHYLAXIS AGAINST GASTROINTESTINAL ULCER
     Dosage: 20 MG, QD
     Route: 048
     Dates: start: 20080101
  11. ANALGIN [Concomitant]
     Indication: PAIN
     Dosage: 500 MG, TID
     Route: 048
     Dates: start: 20090311, end: 20090313
  12. IBUPROFEN [Concomitant]
     Indication: PAIN
     Dosage: 600 MG, BID
     Route: 048
     Dates: start: 20090226, end: 20090311

REACTIONS (3)
  - HYPONATRAEMIA [None]
  - RHABDOMYOLYSIS [None]
  - DRUG INTERACTION [None]
